FAERS Safety Report 9275927 (Version 1)
Quarter: 2012Q4

REPORT INFORMATION
  Report Type: Spontaneous
  Country: GB (occurrence: None)
  Receive Date: 20121109
  Receipt Date: 20121109
  Transmission Date: 20130627
  Serious: Yes (Life-Threatening, Hospitalization, Disabling, Other)
  Sender: FDA-Public Use
  Company Number: 2012S1000441

PATIENT
  Age: 59 Year
  Sex: Female

DRUGS (3)
  1. CUBICIN (DAPTOMYCIN) [Suspect]
     Indication: OSTEOMYELITIS
     Dates: start: 20120426, end: 20120502
  2. CLINDAMYCIN [Concomitant]
  3. VITAMIN A+D [Concomitant]

REACTIONS (6)
  - Hyperparathyroidism [None]
  - Blood alkaline phosphatase increased [None]
  - Blood creatine phosphokinase increased [None]
  - Myalgia [None]
  - Muscular weakness [None]
  - Musculoskeletal stiffness [None]
